FAERS Safety Report 21055120 (Version 1)
Quarter: 2022Q3

REPORT INFORMATION
  Report Type: Report from Study
  Country: RO (occurrence: RO)
  Receive Date: 20220707
  Receipt Date: 20220707
  Transmission Date: 20221026
  Serious: Yes (Death)
  Sender: FDA-Public Use
  Company Number: RO-ABBVIE-22K-135-4459719-00

PATIENT
  Age: 54 Year
  Sex: Female

DRUGS (2)
  1. CARBIDOPA\LEVODOPA [Suspect]
     Active Substance: CARBIDOPA\LEVODOPA
     Indication: Parkinson^s disease
     Dosage: DM: 4.00 DC: 2.60 ED: 1.00 NRED: 0; DMN: 0.00 DCN: 0.00 EDN: 0.00 NREDN: 0
     Route: 050
     Dates: start: 20191108, end: 20220705
  2. CARBIDOPA\LEVODOPA [Suspect]
     Active Substance: CARBIDOPA\LEVODOPA

REACTIONS (1)
  - Cardio-respiratory arrest [Fatal]

NARRATIVE: CASE EVENT DATE: 20220705
